FAERS Safety Report 7091216-7 (Version None)
Quarter: 2010Q4

REPORT INFORMATION
  Report Type: 
  Country: None (occurrence: None)
  Receive Date: 20101101
  Receipt Date: 20101020
  Transmission Date: 20110411
  Serious: Yes (Other)
  Sender: FDA-Public Use
  Company Number: US-1183848

PATIENT
  Sex: Female

DRUGS (1)
  1. BION TEARS EYE DROPS [Suspect]
     Dosage: (OPHTHALMIC)
     Route: 047

REACTIONS (1)
  - CONJUNCTIVAL OEDEMA [None]
